FAERS Safety Report 9881618 (Version 1)
Quarter: 2014Q1

REPORT INFORMATION
  Report Type: Spontaneous
  Country: CL (occurrence: CL)
  Receive Date: 20140207
  Receipt Date: 20140207
  Transmission Date: 20141002
  Serious: Yes (Other)
  Sender: FDA-Public Use
  Company Number: CL-PFIZER INC-2014033143

PATIENT
  Age: 78 Year
  Sex: Female

DRUGS (5)
  1. XALATAN [Suspect]
     Indication: GLAUCOMA
     Dosage: 1 GTT, 1X/DAY
     Route: 047
     Dates: start: 1999
  2. AMLODIPINE [Concomitant]
     Dosage: 10 MG, 1X/DAY
  3. DIABION [Concomitant]
     Dosage: UNK
     Dates: start: 2012
  4. GLIBENCLAMIDA [Concomitant]
     Dosage: UNK
     Dates: start: 2004
  5. METFORMIN [Concomitant]

REACTIONS (2)
  - Diabetes mellitus [Recovered/Resolved]
  - Hypertension [Recovered/Resolved]
